FAERS Safety Report 13883017 (Version 1)
Quarter: 2017Q3

REPORT INFORMATION
  Report Type: Spontaneous
  Country: US (occurrence: US)
  Receive Date: 20170818
  Receipt Date: 20170818
  Transmission Date: 20171127
  Serious: Yes (Disabling)
  Sender: FDA-Public Use
  Company Number: US-ACTELION-A-NJ2017-158230

PATIENT
  Age: 87 Year
  Sex: Male

DRUGS (1)
  1. VALCHLOR [Suspect]
     Active Substance: MECHLORETHAMINE
     Indication: MYCOSIS FUNGOIDES
     Dosage: APPLY THIN FILM ONCE DAILY TO AFFECTED AREAS, QD
     Route: 061
     Dates: start: 201505

REACTIONS (2)
  - Pulmonary thrombosis [Unknown]
  - Heart rate irregular [Unknown]
